FAERS Safety Report 13788231 (Version 1)
Quarter: 2017Q3

REPORT INFORMATION
  Report Type: Spontaneous
  Country: US (occurrence: US)
  Receive Date: 20170725
  Receipt Date: 20170725
  Transmission Date: 20171127
  Serious: No
  Sender: FDA-Public Use
  Company Number: US-UNITED THERAPEUTICS-UNT-2017-002696

PATIENT
  Age: 69 Year
  Sex: Female
  Weight: 47.98 kg

DRUGS (4)
  1. TYVASO [Suspect]
     Active Substance: TREPROSTINIL
     Indication: PULMONARY HYPERTENSION
     Dosage: 18-54 ?G, QID
     Dates: start: 20170213
  2. ADCIRCA [Concomitant]
     Active Substance: TADALAFIL
     Indication: PRODUCT USED FOR UNKNOWN INDICATION
  3. TYVASO [Suspect]
     Active Substance: TREPROSTINIL
     Dosage: UNK
  4. XARELTO [Suspect]
     Active Substance: RIVAROXABAN
     Indication: PRODUCT USED FOR UNKNOWN INDICATION
     Route: 065

REACTIONS (12)
  - Frequent bowel movements [Unknown]
  - Headache [Unknown]
  - Epistaxis [Unknown]
  - Dyspnoea [Not Recovered/Not Resolved]
  - Feeling cold [Unknown]
  - Dizziness [Unknown]
  - Fatigue [Not Recovered/Not Resolved]
  - Dyspnoea exertional [Unknown]
  - Haematochezia [Unknown]
  - Eye disorder [Recovering/Resolving]
  - Condition aggravated [Unknown]
  - Cough [Unknown]

NARRATIVE: CASE EVENT DATE: 201702
